FAERS Safety Report 10097499 (Version 4)
Quarter: 2015Q1

REPORT INFORMATION
  Report Type: Spontaneous
  Country: US (occurrence: US)
  Receive Date: 20140423
  Receipt Date: 20150317
  Transmission Date: 20150720
  Serious: Yes (Hospitalization, Other)
  Sender: FDA-Public Use
  Company Number: US-AMGEN INC.-USASP2014028871

PATIENT
  Age: 51 Year
  Sex: Male
  Weight: 89.81 kg

DRUGS (23)
  1. ENBREL [Suspect]
     Active Substance: ETANERCEPT
     Indication: PSORIATIC ARTHROPATHY
     Dosage: 50 MG, QWK
     Route: 065
     Dates: start: 20131001, end: 201412
  2. ENBREL [Suspect]
     Active Substance: ETANERCEPT
     Indication: PSORIASIS
  3. MAALOX ANTACID [Concomitant]
     Active Substance: ALUMINUM HYDROXIDE\DIMETHICONE\MAGNESIUM HYDROXIDE
     Dosage: 30 ML, UNK
     Route: 048
  4. XYLOCAINE [Concomitant]
     Active Substance: LIDOCAINE HYDROCHLORIDE
     Dosage: 10 ML, UNK
  5. BACTRIM [Concomitant]
     Active Substance: SULFAMETHOXAZOLE\TRIMETHOPRIM
     Dosage: 800-160 MG PER TABLET
     Route: 048
  6. PROTONIX [Concomitant]
     Active Substance: PANTOPRAZOLE SODIUM
     Dosage: 2 TABLETS 20 MG, DAILY
     Route: 048
  7. BOOSTRIX [Concomitant]
     Active Substance: TETANUS TOXOID, REDUCED DIPHTHERIA TOXOID AND ACELLULAR PERTUSSIS VACCINE, ADSORBED ANTIGENS
     Dosage: 0.5 ML, UNK
     Route: 030
  8. TEMOVATE [Concomitant]
     Active Substance: CLOBETASOL PROPIONATE
     Dosage: 0.05 %, TWO TIMES DAILY
     Route: 061
  9. CREON [Concomitant]
     Active Substance: PANCRELIPASE AMYLASE\PANCRELIPASE LIPASE\PANCRELIPASE PROTEASE
     Dosage: 18000 IU, TID
     Route: 048
  10. FENOFIBRATE. [Concomitant]
     Active Substance: FENOFIBRATE
     Dosage: 67 MG, DAILY
  11. PRAVACHOL [Concomitant]
     Active Substance: PRAVASTATIN SODIUM
     Dosage: 10 MG, DAILY
  12. KEFLEX [Concomitant]
     Active Substance: CEPHALEXIN
     Dosage: 500 MG, UNK
     Route: 048
  13. ZOFRAN                             /00955301/ [Concomitant]
     Active Substance: ONDANSETRON HYDROCHLORIDE
     Dosage: 4 MG, EVERY 6 HOURS
     Route: 048
  14. SIMETHICONE [Concomitant]
     Active Substance: DIMETHICONE\SILICON DIOXIDE\SIMETHICONE
     Dosage: 125 MG, EVERY SIX HOURS AS NEEDED
     Route: 048
  15. BENTYL [Suspect]
     Active Substance: DICYCLOMINE HYDROCHLORIDE
     Indication: PRODUCT USED FOR UNKNOWN INDICATION
     Dosage: UNK
     Route: 065
  16. DILAUDID [Concomitant]
     Active Substance: HYDROMORPHONE HYDROCHLORIDE
     Dosage: 1 MG, UNK
     Route: 030
  17. ASPIRIN                            /00002701/ [Concomitant]
     Active Substance: ASPIRIN
     Dosage: 325 MG, DAILY
     Route: 048
  18. ZESTRIL [Concomitant]
     Active Substance: LISINOPRIL
     Dosage: 5 MG, 4 TABLETS DAILY
     Route: 048
  19. AUGMENTIN [Concomitant]
     Active Substance: AMOXICILLIN\CLAVULANATE POTASSIUM
     Dosage: 125 MG PER TABLET
     Route: 048
  20. PHENERGAN [Concomitant]
     Active Substance: PROMETHAZINE HYDROCHLORIDE
     Dosage: 12.5 MG, UNK
     Route: 030
  21. TENORMIN [Concomitant]
     Active Substance: ATENOLOL
     Dosage: 100 MG, DAILY
     Route: 048
  22. CYMBALTA [Concomitant]
     Active Substance: DULOXETINE HYDROCHLORIDE
     Dosage: 20 MG, DAILY
     Route: 048
  23. MYCOSTATIN [Concomitant]
     Active Substance: NYSTATIN
     Dosage: 5 ML, 500000 UNITS FOUR TIMES DAILY
     Route: 048

REACTIONS (40)
  - Loss of consciousness [Unknown]
  - Blister infected [Recovered/Resolved]
  - Burning sensation [Unknown]
  - Hyponatraemia [Recovered/Resolved]
  - Fatigue [Not Recovered/Not Resolved]
  - Candida infection [Unknown]
  - Confusional state [Unknown]
  - Hypertension [Recovered/Resolved]
  - Laceration [Recovered/Resolved]
  - Gastritis [Unknown]
  - Bronchitis [Recovered/Resolved]
  - Abscess limb [Recovered/Resolved]
  - Arthropathy [Not Recovered/Not Resolved]
  - Transaminases increased [Unknown]
  - Diarrhoea [Recovered/Resolved]
  - Gastrointestinal disorder [Not Recovered/Not Resolved]
  - Impaired healing [Not Recovered/Not Resolved]
  - Thirst [Unknown]
  - Blood cortisol decreased [Unknown]
  - Nervousness [Unknown]
  - Limb operation [Recovered/Resolved]
  - Osteomyelitis [Recovered/Resolved]
  - Cellulitis [Recovered/Resolved]
  - Seizure [Recovered/Resolved]
  - Wound infection [Not Recovered/Not Resolved]
  - Dehydration [Recovered/Resolved]
  - Sjogren^s syndrome [Unknown]
  - Irritable bowel syndrome [Unknown]
  - Asthenia [Recovered/Resolved]
  - Pharyngitis [Not Recovered/Not Resolved]
  - Autoimmune disorder [Recovered/Resolved]
  - Walking aid user [Not Recovered/Not Resolved]
  - Coronary artery disease [Unknown]
  - Arthralgia [Not Recovered/Not Resolved]
  - Back pain [Not Recovered/Not Resolved]
  - Abdominal pain upper [Unknown]
  - Nausea [Recovered/Resolved]
  - Vomiting [Recovered/Resolved]
  - Rash [Unknown]
  - Psoriasis [Not Recovered/Not Resolved]

NARRATIVE: CASE EVENT DATE: 201310
